FAERS Safety Report 10099546 (Version 3)
Quarter: 2014Q2

REPORT INFORMATION
  Report Type: Report from Study
  Country: CA (occurrence: CA)
  Receive Date: 20140423
  Receipt Date: 20140605
  Transmission Date: 20141212
  Serious: Yes (Hospitalization, Other)
  Sender: FDA-Public Use
  Company Number: CA-JNJFOC-20140414293

PATIENT
  Age: 44 Year
  Sex: Male
  Weight: 66.9 kg

DRUGS (10)
  1. REMICADE [Suspect]
     Indication: CROHN^S DISEASE
     Route: 042
     Dates: start: 20130220
  2. ASACOL [Concomitant]
     Route: 065
  3. IMURAN [Concomitant]
     Route: 065
  4. POTASSIUM [Concomitant]
     Route: 065
  5. IRON [Concomitant]
     Route: 065
  6. WARFARIN [Concomitant]
     Route: 065
  7. MORPHINE [Concomitant]
     Dosage: SR AND IR
     Route: 048
  8. MAGNESIUM [Concomitant]
     Route: 065
  9. RANITIDINE [Concomitant]
     Route: 065
  10. TEMAZEPAM [Concomitant]
     Route: 065

REACTIONS (7)
  - Portal hypertension [Unknown]
  - Varices oesophageal [Unknown]
  - Dehydration [Unknown]
  - Nausea [Not Recovered/Not Resolved]
  - Vomiting [Not Recovered/Not Resolved]
  - Abdominal pain [Not Recovered/Not Resolved]
  - Pain [Not Recovered/Not Resolved]
